FAERS Safety Report 24450220 (Version 3)
Quarter: 2024Q4

REPORT INFORMATION
  Report Type: Spontaneous
  Country: DE (occurrence: None)
  Receive Date: 20241017
  Receipt Date: 20241108
  Transmission Date: 20250114
  Serious: Yes (Hospitalization, Other)
  Sender: ORION
  Company Number: DE-Orion Corporation ORION PHARMA-ENTC2024-0126

PATIENT
  Age: 71 Year
  Sex: Male

DRUGS (7)
  1. CARBIDOPA\ENTACAPONE\LEVODOPA [Interacting]
     Active Substance: CARBIDOPA\ENTACAPONE\LEVODOPA
     Indication: Parkinson^s disease
     Dosage: STRENGTH: LEVODOPA100/CARBIDOPA25/ENTACAPONE200MG, FOR MANY YEARS
     Dates: start: 1999
  2. CARBIDOPA\ENTACAPONE\LEVODOPA [Interacting]
     Active Substance: CARBIDOPA\ENTACAPONE\LEVODOPA
     Dosage: STRENGTH: LEVODOPA 100/CARBIDOPA 25/ENTACAPONE 200MG
     Dates: start: 1999
  3. AMANTADINE SULFATE [Interacting]
     Active Substance: AMANTADINE SULFATE
     Indication: Parkinson^s disease
     Dosage: STRENGTH: 100 MG
     Dates: start: 1999
  4. XADAGO [Interacting]
     Active Substance: SAFINAMIDE MESYLATE
     Indication: Parkinson^s disease
     Dosage: STRENGTH: 50 MG
     Dates: start: 20240603, end: 2024
  5. LATANOPROST AUGENTROPFEN [Concomitant]
     Dosage: STRENGTH: 50 MICROGRAM/ML
  6. ASPIRIN [Concomitant]
     Active Substance: ASPIRIN
     Dosage: STRENGTH: 100 MG
  7. PROSTAGUTT DUO [Concomitant]
     Dosage: STRENGTH: 160MG/120MG

REACTIONS (6)
  - Drug interaction [Unknown]
  - Speech disorder [Unknown]
  - Memory impairment [Unknown]
  - Vision blurred [Unknown]
  - Visual field defect [Unknown]
  - Partial seizures [Recovering/Resolving]

NARRATIVE: CASE EVENT DATE: 20241006
